FAERS Safety Report 24324911 (Version 1)
Quarter: 2024Q3

REPORT INFORMATION
  Report Type: Spontaneous
  Country: RS (occurrence: RS)
  Receive Date: 20240916
  Receipt Date: 20240916
  Transmission Date: 20241016
  Serious: Yes (Other)
  Sender: BRISTOL MYERS SQUIBB
  Company Number: RS-BRISTOL-MYERS SQUIBB COMPANY-2024-146925

PATIENT
  Age: 44 Year
  Sex: Male

DRUGS (2)
  1. OPDIVO [Suspect]
     Active Substance: NIVOLUMAB
     Indication: Superficial spreading melanoma stage unspecified
     Dates: start: 20240119
  2. YERVOY [Suspect]
     Active Substance: IPILIMUMAB
     Indication: Superficial spreading melanoma stage unspecified
     Dates: start: 20240119

REACTIONS (5)
  - Cytokine release syndrome [Recovering/Resolving]
  - Pleural effusion [Recovering/Resolving]
  - Hepatic lesion [Recovering/Resolving]
  - Metastatic malignant melanoma [Unknown]
  - Off label use [Unknown]

NARRATIVE: CASE EVENT DATE: 20240329
